FAERS Safety Report 17776247 (Version 4)
Quarter: 2020Q4

REPORT INFORMATION
  Report Type: Report from Study
  Country: US (occurrence: US)
  Receive Date: 20200513
  Receipt Date: 20201230
  Transmission Date: 20210113
  Serious: Yes (Death, Other)
  Sender: FDA-Public Use
  Company Number: US-ACADIA PHARMACEUTICALS INC.-ACA-2019-013207

PATIENT
  Age: 76 Year
  Sex: Male

DRUGS (1)
  1. NUPLAZID [Suspect]
     Active Substance: PIMAVANSERIN TARTRATE
     Indication: PARKINSON^S DISEASE
     Dosage: 34 MG, QD
     Route: 048
     Dates: start: 20190601, end: 20201109

REACTIONS (4)
  - Acute respiratory failure [Recovered/Resolved]
  - COVID-19 [Recovered/Resolved]
  - Urinary tract infection [Unknown]
  - Aggression [Unknown]

NARRATIVE: CASE EVENT DATE: 201906
